FAERS Safety Report 7963174-1 (Version None)
Quarter: 2011Q4

REPORT INFORMATION
  Report Type: 
  Country: None (occurrence: None)
  Receive Date: 20111208
  Receipt Date: 20111205
  Transmission Date: 20120403
  Serious: Yes (Hospitalization)
  Sender: FDA-Public Use
  Company Number: ES-AMGEN-ESPCT2011064510

PATIENT
  Age: 74 Year
  Sex: Female

DRUGS (4)
  1. DOXORUBICIN HCL [Concomitant]
     Dosage: 90.66 MG, Q3WK
     Route: 042
     Dates: start: 20110913
  2. BLINDED PLACEBO [Suspect]
     Indication: BREAST CANCER
     Dosage: UNK UNK, Q3WK
     Route: 058
     Dates: start: 20110913
  3. CYCLOPHOSPHAMIDE [Concomitant]
     Dosage: 906.60 MG, Q3WK
     Route: 042
     Dates: start: 20110913
  4. BLINDED DENOSUMAB [Suspect]
     Indication: BREAST CANCER
     Dosage: UNK UNK, Q3WK
     Route: 058
     Dates: start: 20110913

REACTIONS (1)
  - GENERAL PHYSICAL HEALTH DETERIORATION [None]
